FAERS Safety Report 5867595-2 (Version None)
Quarter: 2008Q3

REPORT INFORMATION
  Report Type: 
  Country: None (occurrence: None)
  Receive Date: 20080902
  Receipt Date: 20071101
  Transmission Date: 20090109
  Serious: No
  Sender: FDA-Public Use
  Company Number: US-ABBOTT-07P-163-0423522-00

PATIENT
  Age: 43 Year
  Sex: Male
  Weight: 113.6 kg

DRUGS (1)
  1. DEPAKOTE ER [Suspect]
     Indication: PATHOLOGICAL GAMBLING
     Route: 048
     Dates: start: 20070901

REACTIONS (3)
  - LETHARGY [None]
  - MIDDLE INSOMNIA [None]
  - WEIGHT INCREASED [None]
